FAERS Safety Report 12379309 (Version 1)
Quarter: 2016Q2

REPORT INFORMATION
  Report Type: Report from Study
  Country: US (occurrence: US)
  Receive Date: 20160517
  Receipt Date: 20160517
  Transmission Date: 20160815
  Serious: Yes (Other)
  Sender: FDA-Public Use
  Company Number: US-GILEAD-2016-0213713

PATIENT
  Age: 59 Year
  Sex: Female

DRUGS (1)
  1. LEDIPASVIR/SOFOSBUVIR [Suspect]
     Active Substance: LEDIPASVIR\SOFOSBUVIR
     Indication: HEPATITIS C
     Dosage: 1 DF, UNK
     Route: 048

REACTIONS (7)
  - Muscle spasms [Unknown]
  - Spinal operation [Recovered/Resolved]
  - Erythema [Unknown]
  - Depression [Unknown]
  - Therapeutic response unexpected [Unknown]
  - Crying [Unknown]
  - Weight decreased [Unknown]
